FAERS Safety Report 15570790 (Version 1)
Quarter: 2018Q4

REPORT INFORMATION
  Report Type: Spontaneous
  Country: US (occurrence: US)
  Receive Date: 20181031
  Receipt Date: 20181031
  Transmission Date: 20190205
  Serious: Yes (Death, Life-Threatening, Disabling)
  Sender: FDA-Public Use
  Company Number: None

PATIENT
  Age: 66 Year
  Sex: Female
  Weight: 90 kg

DRUGS (1)
  1. LISINOPRIL. [Suspect]
     Active Substance: LISINOPRIL
     Dates: start: 20181019, end: 20181019

REACTIONS (7)
  - Pulseless electrical activity [None]
  - Respiratory arrest [None]
  - Swollen tongue [None]
  - Anxiety [None]
  - Oxygen saturation decreased [None]
  - Cardiac arrest [None]
  - Dyspnoea [None]

NARRATIVE: CASE EVENT DATE: 20181019
